FAERS Safety Report 9187473 (Version 1)
Quarter: 2013Q1

REPORT INFORMATION
  Report Type: Spontaneous
  Country: CA (occurrence: CA)
  Receive Date: 20130325
  Receipt Date: 20130325
  Transmission Date: 20140127
  Serious: Yes (Other)
  Sender: FDA-Public Use
  Company Number: CA-AMGEN-CANSP2013018876

PATIENT
  Age: 73 Year
  Sex: Female
  Weight: 66.82 kg

DRUGS (2)
  1. PROLIA [Suspect]
     Indication: OSTEOPOROSIS
  2. FOSAVANCE [Concomitant]

REACTIONS (4)
  - Bone loss [Unknown]
  - Spinal disorder [Unknown]
  - Acne [Unknown]
  - Pruritus [Unknown]
